FAERS Safety Report 6470959 (Version 23)
Quarter: 2013Q1

REPORT INFORMATION
  Report Type: Spontaneous
  Country: US (occurrence: US)
  Receive Date: 20071119
  Receipt Date: 20130103
  Transmission Date: 20140127
  Serious: Yes (Hospitalization, Congenital Anomaly, Other)
  Sender: FDA-Public Use
  Company Number: US-PFIZER INC-2007095343

PATIENT
  Sex: Male
  Weight: 2 kg

DRUGS (12)
  1. ZOLOFT [Suspect]
     Indication: DEPRESSION
     Dosage: 100 MG, 1X/DAY
     Route: 064
     Dates: start: 1997, end: 2005
  2. ZOLOFT [Suspect]
     Indication: OBSESSIVE-COMPULSIVE DISORDER
  3. ZOLOFT [Suspect]
     Indication: ANXIETY
  4. ZOLOFT [Suspect]
     Indication: AFFECTIVE DISORDER
  5. RANITIDINE [Concomitant]
     Dosage: UNK
     Route: 064
  6. PRENATAL VITAMINS [Concomitant]
     Dosage: UNK
     Route: 064
  7. PROMETHAZINE [Concomitant]
     Dosage: UNK
     Route: 064
  8. NITROUS OXIDE [Concomitant]
     Dosage: UNK
     Route: 064
  9. MACROBID [Concomitant]
     Dosage: UNK
     Route: 064
  10. CEPHALEXIN [Concomitant]
     Dosage: UNK
     Route: 064
  11. PHENERGAN [Concomitant]
     Dosage: UNK
     Route: 064
  12. TYLENOL X-S [Concomitant]
     Dosage: UNK
     Route: 064

REACTIONS (15)
  - Foetal exposure during pregnancy [Unknown]
  - Atrial septal defect [Unknown]
  - Respiratory disorder [Unknown]
  - Talipes [Recovered/Resolved]
  - Foetal growth restriction [Recovered/Resolved]
  - Hypospadias [Unknown]
  - Umbilical cord abnormality [Unknown]
  - Ventricular septal defect [Unknown]
  - Head deformity [Unknown]
  - Ear malformation [Unknown]
  - Hydronephrosis [Recovered/Resolved]
  - Ear infection [Recovered/Resolved]
  - Developmental delay [Unknown]
  - Weight gain poor [Unknown]
  - Failure to thrive [Unknown]
